FAERS Safety Report 21208951 (Version 1)
Quarter: 2022Q3

REPORT INFORMATION
  Report Type: Spontaneous
  Country: US (occurrence: None)
  Receive Date: 20220812
  Receipt Date: 20220812
  Transmission Date: 20221026
  Serious: Yes (Life-Threatening, Hospitalization, Disabling)
  Sender: FDA-Public Use
  Company Number: None

PATIENT
  Age: 28 Year
  Sex: Female
  Weight: 67.5 kg

DRUGS (3)
  1. CEFDINIR [Suspect]
     Active Substance: CEFDINIR
     Indication: Urinary tract infection
     Dosage: OTHER QUANTITY : 1 CAPSULE(S);?FREQUENCY : TWICE A DAY;?
     Route: 048
     Dates: start: 20210603, end: 20210613
  2. METRONIDAZOLE [Suspect]
     Active Substance: METRONIDAZOLE
  3. VANCOMYCIN [Suspect]
     Active Substance: VANCOMYCIN

REACTIONS (6)
  - Diarrhoea [None]
  - Abdominal pain [None]
  - Dehydration [None]
  - Clostridium difficile infection [None]
  - Ear pain [None]
  - Hypoacusis [None]

NARRATIVE: CASE EVENT DATE: 20210621
